FAERS Safety Report 4948478-9 (Version None)
Quarter: 2006Q1

REPORT INFORMATION
  Report Type: 
  Country: None (occurrence: None)
  Receive Date: 20060313
  Receipt Date: 20060303
  Transmission Date: 20060701
  Serious: Yes (Other)
  Sender: FDA-Public Use
  Company Number: 2006-03-0138

PATIENT
  Age: 71 Year
  Sex: Female

DRUGS (7)
  1. TEMODAL [Suspect]
     Indication: PARAGANGLION NEOPLASM
     Dosage: 150MG/M2 QDX5 ORAL
     Route: 048
     Dates: start: 20050501
  2. SANDOSTATIN [Concomitant]
  3. LEVAXIN [Concomitant]
  4. PANTOPRAZOLE SODIUM [Concomitant]
  5. DOLOXENE [Concomitant]
  6. ALVEDON [Concomitant]
  7. BEHEPAN [Concomitant]

REACTIONS (1)
  - SUDDEN HEARING LOSS [None]
